FAERS Safety Report 16704979 (Version 2)
Quarter: 2020Q1

REPORT INFORMATION
  Report Type: Spontaneous
  Country: US (occurrence: US)
  Receive Date: 20190814
  Receipt Date: 20200309
  Transmission Date: 20200409
  Serious: Yes (Death, Other)
  Sender: FDA-Public Use
  Company Number: US-ASTRAZENECA-2019SF15870

PATIENT
  Age: 20143 Day
  Sex: Female

DRUGS (43)
  1. NEXIUM [Suspect]
     Active Substance: ESOMEPRAZOLE MAGNESIUM
     Indication: GASTROOESOPHAGEAL REFLUX DISEASE
     Route: 048
     Dates: start: 2005, end: 2017
  2. AMOXICILLIN. [Concomitant]
     Active Substance: AMOXICILLIN
  3. LEVEMIR [Concomitant]
     Active Substance: INSULIN DETEMIR
  4. NEXIUM [Suspect]
     Active Substance: ESOMEPRAZOLE MAGNESIUM
     Indication: GASTROOESOPHAGEAL REFLUX DISEASE
     Route: 048
     Dates: start: 2011, end: 2017
  5. NEXIUM [Suspect]
     Active Substance: ESOMEPRAZOLE MAGNESIUM
     Indication: GASTROOESOPHAGEAL REFLUX DISEASE
     Dosage: 40.0MG UNKNOWN
     Route: 048
     Dates: start: 20080311
  6. METFORMIN [Concomitant]
     Active Substance: METFORMIN HYDROCHLORIDE
  7. TRAMADOL. [Concomitant]
     Active Substance: TRAMADOL
  8. FLUCONAZOLE. [Concomitant]
     Active Substance: FLUCONAZOLE
  9. AZITHROMYCIN ANHYDROUS. [Concomitant]
     Active Substance: AZITHROMYCIN ANHYDROUS
  10. LASIX [Concomitant]
     Active Substance: FUROSEMIDE
  11. ULTRAM [Concomitant]
     Active Substance: TRAMADOL HYDROCHLORIDE
  12. ATENOLOL. [Concomitant]
     Active Substance: ATENOLOL
  13. GABAPENTIN. [Concomitant]
     Active Substance: GABAPENTIN
  14. AMLODIPINE [Concomitant]
     Active Substance: AMLODIPINE BESYLATE
  15. CITALOPRAM [Concomitant]
     Active Substance: CITALOPRAM HYDROBROMIDE
  16. CELECOXIB. [Concomitant]
     Active Substance: CELECOXIB
  17. LEVOTHYROXINE SODIUM. [Concomitant]
     Active Substance: LEVOTHYROXINE SODIUM
  18. GLIPIZIDE. [Concomitant]
     Active Substance: GLIPIZIDE
  19. NORVASC [Concomitant]
     Active Substance: AMLODIPINE BESYLATE
  20. ASPIRIN. [Concomitant]
     Active Substance: ASPIRIN
  21. AXID [Concomitant]
     Active Substance: NIZATIDINE
  22. LOMOTIL [Concomitant]
     Active Substance: ATROPINE SULFATE\DIPHENOXYLATE HYDROCHLORIDE
  23. GLYBURIDE. [Concomitant]
     Active Substance: GLYBURIDE
  24. CIPROFLOXACIN. [Concomitant]
     Active Substance: CIPROFLOXACIN
  25. METOPROLOL TARTRATE. [Concomitant]
     Active Substance: METOPROLOL TARTRATE
  26. LOVASTATIN. [Concomitant]
     Active Substance: LOVASTATIN
  27. IBUPROFEN. [Concomitant]
     Active Substance: IBUPROFEN
  28. CLINDAMYCIN. [Concomitant]
     Active Substance: CLINDAMYCIN
  29. LYRICA [Concomitant]
     Active Substance: PREGABALIN
  30. MELOXICAM. [Concomitant]
     Active Substance: MELOXICAM
  31. METRONIDAZOLE. [Concomitant]
     Active Substance: METRONIDAZOLE
  32. ALPRAZOLAM. [Concomitant]
     Active Substance: ALPRAZOLAM
  33. BACLOFEN. [Concomitant]
     Active Substance: BACLOFEN
  34. MEVACOR [Concomitant]
     Active Substance: LOVASTATIN
  35. FLONASE [Concomitant]
     Active Substance: FLUTICASONE PROPIONATE
  36. LISINOPRIL. [Concomitant]
     Active Substance: LISINOPRIL
  37. NEXIUM 24HR [Suspect]
     Active Substance: ESOMEPRAZOLE MAGNESIUM
     Indication: GASTROOESOPHAGEAL REFLUX DISEASE
     Route: 048
     Dates: start: 2005, end: 2017
  38. NEXIUM 24HR [Suspect]
     Active Substance: ESOMEPRAZOLE MAGNESIUM
     Indication: GASTROOESOPHAGEAL REFLUX DISEASE
     Route: 048
     Dates: start: 2015, end: 2017
  39. ROBAXIN [Concomitant]
     Active Substance: METHOCARBAMOL
  40. CELEXA [Concomitant]
     Active Substance: CITALOPRAM HYDROBROMIDE
  41. CEFADROXIL. [Concomitant]
     Active Substance: CEFADROXIL
  42. HYOSCYAMINE. [Concomitant]
     Active Substance: HYOSCYAMINE
  43. NIZATIDINE. [Concomitant]
     Active Substance: NIZATIDINE

REACTIONS (3)
  - Chronic kidney disease [Not Recovered/Not Resolved]
  - Renal failure [Not Recovered/Not Resolved]
  - Death [Fatal]

NARRATIVE: CASE EVENT DATE: 20121018
